FAERS Safety Report 8974313 (Version 2)
Quarter: 2013Q1

REPORT INFORMATION
  Report Type: Report from Study
  Country: JP (occurrence: JP)
  Receive Date: 20121220
  Receipt Date: 20130114
  Transmission Date: 20140127
  Serious: Yes (Death)
  Sender: FDA-Public Use
  Company Number: JP-ASTELLAS-2012JP011825

PATIENT
  Age: 85 Year
  Sex: Male

DRUGS (3)
  1. MIRABEGRON [Suspect]
     Indication: HYPERTONIC BLADDER
     Dosage: 50 MG, UID/QD
     Route: 048
     Dates: start: 20121005, end: 20121205
  2. URIEF [Concomitant]
     Indication: BENIGN PROSTATIC HYPERPLASIA
     Dosage: 8 MG, UNKNOWN/D
     Route: 048
     Dates: start: 20111110, end: 20121205
  3. CERNILTON                          /07493601/ [Concomitant]
     Indication: BENIGN PROSTATIC HYPERPLASIA
     Dosage: 4 DF, UNKNOWN/D
     Route: 048
     Dates: start: 20111008, end: 20121205

REACTIONS (1)
  - Aortic dissection [Fatal]
